FAERS Safety Report 17969047 (Version 1)
Quarter: 2020Q3

REPORT INFORMATION
  Report Type: Spontaneous
  Country: US (occurrence: US)
  Receive Date: 20200701
  Receipt Date: 20200701
  Transmission Date: 20201103
  Serious: No
  Sender: FDA-Public Use
  Company Number: US-PFM-2020-00512

PATIENT
  Age: 7 Month
  Sex: Male

DRUGS (2)
  1. HEMANGEOL [Suspect]
     Active Substance: PROPRANOLOL HYDROCHLORIDE
     Indication: BIRTH MARK
     Dosage: 1.5 ML, BID (2/DAY)
     Route: 065
  2. HEMANGEOL [Suspect]
     Active Substance: PROPRANOLOL HYDROCHLORIDE
     Indication: OFF LABEL USE

REACTIONS (4)
  - Product administered to patient of inappropriate age [Unknown]
  - Off label use [Unknown]
  - Product use in unapproved indication [Unknown]
  - Sleep disorder [Unknown]

NARRATIVE: CASE EVENT DATE: 20200109
